FAERS Safety Report 6435913-2 (Version None)
Quarter: 2009Q4

REPORT INFORMATION
  Report Type: 
  Country: None (occurrence: None)
  Receive Date: 20091111
  Receipt Date: 20091102
  Transmission Date: 20100525
  Serious: Yes (Hospitalization)
  Sender: FDA-Public Use
  Company Number: FR-TEVA-214407ISR

PATIENT
  Sex: Male
  Weight: 60 kg

DRUGS (9)
  1. FLUOROURACIL [Suspect]
     Indication: COLORECTAL CANCER METASTATIC
     Route: 042
     Dates: start: 20070430
  2. FLUOROURACIL [Suspect]
     Route: 041
     Dates: start: 20070430
  3. IRINOTECAN HCL [Suspect]
     Indication: COLORECTAL CANCER METASTATIC
     Dates: start: 20070430
  4. FOLINIC ACID [Suspect]
     Indication: COLORECTAL CANCER METASTATIC
     Dates: start: 20070430
  5. BEVACIZUMAB [Suspect]
     Indication: COLORECTAL CANCER METASTATIC
     Dates: start: 20070430
  6. DIGOXIN [Concomitant]
  7. ASPIRIN AND DIPYRIDAMOLE [Concomitant]
  8. AMLODIPINE BESYLATE [Concomitant]
  9. FUROSEMIDE [Concomitant]

REACTIONS (2)
  - CEREBRAL HAEMATOMA [None]
  - CONVULSION [None]
